FAERS Safety Report 17515971 (Version 3)
Quarter: 2020Q1

REPORT INFORMATION
  Report Type: Spontaneous
  Country: DE (occurrence: DE)
  Receive Date: 20200309
  Receipt Date: 20200317
  Transmission Date: 20200409
  Serious: Yes (Hospitalization, Other)
  Sender: FDA-Public Use
  Company Number: DE-PFIZER INC-2020097444

PATIENT

DRUGS (1)
  1. CYTOTEC [Suspect]
     Active Substance: MISOPROSTOL
     Indication: LABOUR INDUCTION
     Dosage: UNK (AT LEAST 50 MICROGRAMS)
     Route: 064
     Dates: start: 20130502, end: 20130502

REACTIONS (3)
  - Foetal exposure during pregnancy [Unknown]
  - Neonatal hypoxia [Unknown]
  - Cardiac arrest neonatal [Unknown]

NARRATIVE: CASE EVENT DATE: 20130502
